FAERS Safety Report 16074845 (Version 1)
Quarter: 2019Q1

REPORT INFORMATION
  Report Type: Report from Study
  Country: ZA (occurrence: ZA)
  Receive Date: 20190314
  Receipt Date: 20190314
  Transmission Date: 20190418
  Serious: Yes (Hospitalization)
  Sender: FDA-Public Use
  Company Number: PHHY2019ZA057063

PATIENT
  Sex: Female

DRUGS (2)
  1. SANDOZ K [Suspect]
     Active Substance: POTASSIUM CHLORIDE
     Indication: BLOOD POTASSIUM DECREASED
     Dosage: 600 MG, QD
     Route: 048
     Dates: start: 201802
  2. EXFORGE [Suspect]
     Active Substance: AMLODIPINE BESYLATE\VALSARTAN
     Indication: HYPERTENSION
     Dosage: UNK (AMLODIPINE 10MG, VALSARTAN 160MG)
     Route: 048
     Dates: start: 201810

REACTIONS (1)
  - Bladder disorder [Unknown]
